FAERS Safety Report 18240258 (Version 2)
Quarter: 2020Q4

REPORT INFORMATION
  Report Type: Report from Study
  Country: None (occurrence: US)
  Receive Date: 20200908
  Receipt Date: 20201128
  Transmission Date: 20210113
  Serious: Yes (Hospitalization)
  Sender: FDA-Public Use
  Company Number: US-ABBVIE-20K-163-3551862-00

PATIENT
  Age: 63 Year
  Sex: Female
  Weight: 172.52 kg

DRUGS (1)
  1. HUMIRA [Suspect]
     Active Substance: ADALIMUMAB
     Indication: PSORIASIS
     Route: 058
     Dates: start: 20200708, end: 20200821

REACTIONS (4)
  - Pulmonary thrombosis [Recovering/Resolving]
  - Oropharyngeal pain [Unknown]
  - Pneumonia [Recovering/Resolving]
  - Headache [Unknown]

NARRATIVE: CASE EVENT DATE: 202007
